FAERS Safety Report 18044091 (Version 1)
Quarter: 2020Q3

REPORT INFORMATION
  Report Type: Spontaneous
  Country: US (occurrence: US)
  Receive Date: 20200719
  Receipt Date: 20200719
  Transmission Date: 20201103
  Serious: Yes (Hospitalization, Disabling)
  Sender: FDA-Public Use
  Company Number: None

PATIENT
  Sex: Female

DRUGS (7)
  1. RALOXIFENE. [Concomitant]
     Active Substance: RALOXIFENE
  2. T3/T4 COMPOUND [Concomitant]
  3. ESTRADIOL CREAM [Concomitant]
     Active Substance: ESTRADIOL HEMIHYDRATE
  4. MULTI VITAMIN [Concomitant]
     Active Substance: VITAMINS
  5. AIMOVIG [Suspect]
     Active Substance: ERENUMAB-AOOE
  6. CALCIUM [Concomitant]
     Active Substance: CALCIUM
  7. PROBIOTICS [Concomitant]
     Active Substance: PROBIOTICS NOS

REACTIONS (2)
  - Palpitations [None]
  - Constipation [None]
